FAERS Safety Report 6691388-X (Version None)
Quarter: 2010Q2

REPORT INFORMATION
  Report Type: 
  Country: None (occurrence: None)
  Receive Date: 20100422
  Receipt Date: 20100414
  Transmission Date: 20101027
  Serious: Yes (Hospitalization, Other)
  Sender: FDA-Public Use
  Company Number: US-ASTRAZENECA-2007UW16973

PATIENT
  Age: 35 Year
  Sex: Male
  Weight: 81.6 kg

DRUGS (26)
  1. SEROQUEL [Suspect]
     Indication: BIPOLAR DISORDER
     Dosage: 50-800 MG
     Route: 048
     Dates: start: 20010422
  2. SEROQUEL [Suspect]
     Indication: AFFECTIVE DISORDER
     Dosage: 50-800 MG
     Route: 048
     Dates: start: 20010422
  3. SEROQUEL [Suspect]
     Route: 048
     Dates: start: 20010101, end: 20070301
  4. SEROQUEL [Suspect]
     Route: 048
     Dates: start: 20010101, end: 20070301
  5. SEROQUEL [Suspect]
     Dosage: TAKE 1 TABLET EVERY MORNING AND TWO AT NIGHT
     Route: 048
     Dates: start: 20060324
  6. SEROQUEL [Suspect]
     Dosage: TAKE 1 TABLET EVERY MORNING AND TWO AT NIGHT
     Route: 048
     Dates: start: 20060324
  7. ABILIFY [Concomitant]
     Indication: AFFECTIVE DISORDER
     Route: 048
     Dates: start: 20030101
  8. ABILIFY [Concomitant]
     Indication: BIPOLAR DISORDER
     Route: 048
     Dates: start: 20030101
  9. ABILIFY [Concomitant]
     Dosage: 20-30 MG
     Route: 048
     Dates: start: 20060207
  10. ABILIFY [Concomitant]
     Dosage: 20-30 MG
     Route: 048
     Dates: start: 20060207
  11. GEODON [Concomitant]
     Route: 048
     Dates: start: 20010501
  12. GEODON [Concomitant]
     Route: 048
     Dates: start: 20030101, end: 20040101
  13. HALDOL [Concomitant]
     Route: 065
     Dates: start: 19920101, end: 19940101
  14. NAVANE [Concomitant]
     Route: 048
  15. RISPERDAL [Concomitant]
     Route: 048
  16. THORAZINE [Concomitant]
  17. EFFEXOR XR [Concomitant]
     Indication: AFFECTIVE DISORDER
     Dosage: 75-450 MG
     Route: 048
     Dates: start: 20010422
  18. EFFEXOR XR [Concomitant]
     Indication: BIPOLAR DISORDER
     Dosage: 75-450 MG
     Route: 048
     Dates: start: 20010422
  19. XANAX [Concomitant]
     Indication: ANXIETY
     Dosage: 3-6 MG
     Route: 048
     Dates: start: 20020326
  20. PREDNISONE [Concomitant]
     Dosage: 5-30 MG
     Route: 048
     Dates: start: 20030525
  21. SOLU-MEDROL [Concomitant]
     Route: 042
     Dates: start: 20030525
  22. BUSPAR [Concomitant]
     Indication: BIPOLAR DISORDER
     Dosage: 30-60 MG
     Route: 048
     Dates: start: 20000214
  23. KLONOPIN [Concomitant]
     Indication: BIPOLAR DISORDER
     Dosage: 1-6 MG
     Route: 048
     Dates: start: 20000214
  24. KLONOPIN [Concomitant]
     Dosage: ONE TABLET TWICE A DAY PRN
     Route: 048
     Dates: start: 20010722
  25. AMBIEN [Concomitant]
     Route: 048
     Dates: start: 20010501
  26. PAXIL [Concomitant]
     Route: 048
     Dates: start: 20010418

REACTIONS (14)
  - BLOOD CHOLESTEROL INCREASED [None]
  - DIABETES MELLITUS [None]
  - DIABETES MELLITUS INADEQUATE CONTROL [None]
  - DIABETIC KETOACIDOSIS [None]
  - LIVER DISORDER [None]
  - OBESITY [None]
  - OSTEONECROSIS [None]
  - PNEUMONIA [None]
  - SUICIDAL IDEATION [None]
  - SUICIDE ATTEMPT [None]
  - TYPE 1 DIABETES MELLITUS [None]
  - TYPE 2 DIABETES MELLITUS [None]
  - WEIGHT DECREASED [None]
  - WEIGHT INCREASED [None]
